FAERS Safety Report 22125098 (Version 1)
Quarter: 2023Q1

REPORT INFORMATION
  Report Type: Spontaneous
  Country: US (occurrence: US)
  Receive Date: 20230322
  Receipt Date: 20230322
  Transmission Date: 20230417
  Serious: No
  Sender: FDA-Public Use
  Company Number: US-SANOFI-01534306

PATIENT
  Age: 42 Year
  Sex: Female

DRUGS (1)
  1. DUPIXENT [Suspect]
     Active Substance: DUPILUMAB
     Dosage: UNK

REACTIONS (6)
  - Sensitive skin [Unknown]
  - Dermatitis [Unknown]
  - Exposure to fungus [Unknown]
  - Skin laceration [Unknown]
  - Pain of skin [Unknown]
  - Skin burning sensation [Unknown]
